FAERS Safety Report 24404430 (Version 1)
Quarter: 2024Q4

REPORT INFORMATION
  Report Type: Report from Study
  Country: US (occurrence: US)
  Receive Date: 20241007
  Receipt Date: 20241007
  Transmission Date: 20250114
  Serious: No
  Sender: ROCHE
  Company Number: US-ROCHE-3509839

PATIENT
  Age: 75 Year
  Sex: Female
  Weight: 63.5 kg

DRUGS (11)
  1. GAZYVA [Suspect]
     Active Substance: OBINUTUZUMAB
     Indication: Chronic lymphocytic leukaemia
     Route: 065
     Dates: end: 20240123
  2. VENCLEXTA [Suspect]
     Active Substance: VENETOCLAX
     Indication: Chronic lymphocytic leukaemia
     Dosage: ONCE A DAY EVERY MORNING
     Route: 048
     Dates: start: 20231227
  3. VENCLEXTA [Suspect]
     Active Substance: VENETOCLAX
     Dosage: ONCE A DAY EVERY MORNING
     Route: 048
     Dates: start: 202310
  4. VENCLEXTA [Suspect]
     Active Substance: VENETOCLAX
     Dosage: ONCE A DAY EVERY MORNING
     Route: 048
     Dates: start: 202310, end: 202310
  5. VENCLEXTA [Suspect]
     Active Substance: VENETOCLAX
     Dosage: ONCE A DAY EVERY MORNING
     Route: 048
     Dates: start: 202309, end: 202309
  6. VENCLEXTA [Suspect]
     Active Substance: VENETOCLAX
     Dosage: 4/DAY
     Route: 048
     Dates: start: 202309, end: 202309
  7. VENCLEXTA [Suspect]
     Active Substance: VENETOCLAX
     Dosage: ONCE A DAY EVERY MORNING
     Route: 048
     Dates: start: 202310, end: 20231226
  8. BENADRYL [Concomitant]
     Active Substance: DIPHENHYDRAMINE HYDROCHLORIDE
     Indication: Hypersensitivity
  9. ACYCLOVIR [Concomitant]
     Active Substance: ACYCLOVIR
  10. TYLENOL [Concomitant]
     Active Substance: ACETAMINOPHEN
     Indication: Headache
  11. AMBIEN [Concomitant]
     Active Substance: ZOLPIDEM TARTRATE

REACTIONS (8)
  - Diarrhoea [Recovered/Resolved]
  - Eructation [Recovered/Resolved]
  - Gastrooesophageal reflux disease [Not Recovered/Not Resolved]
  - Nausea [Recovered/Resolved]
  - Flatulence [Recovered/Resolved]
  - Abdominal pain upper [Recovered/Resolved]
  - Dyspepsia [Not Recovered/Not Resolved]
  - Initial insomnia [Unknown]
